FAERS Safety Report 7436276-6 (Version None)
Quarter: 2011Q2

REPORT INFORMATION
  Report Type: 
  Country: None (occurrence: None)
  Receive Date: 20110426
  Receipt Date: 20110415
  Transmission Date: 20111010
  Serious: Yes (Other)
  Sender: FDA-Public Use
  Company Number: US-US-EMD SERONO, INC.-7051250

PATIENT
  Sex: Female
  Weight: 86 kg

DRUGS (5)
  1. AVAPRO [Concomitant]
     Route: 048
  2. REBIF [Suspect]
     Indication: MULTIPLE SCLEROSIS
     Route: 058
     Dates: start: 20031009
  3. SYNTHROID [Concomitant]
     Route: 048
  4. PREMARIN [Concomitant]
     Route: 048
  5. MULTI-VITAMIN [Concomitant]
     Route: 048

REACTIONS (3)
  - CYSTOCELE [None]
  - RETINAL HAEMORRHAGE [None]
  - RECTOCELE [None]
